FAERS Safety Report 19738380 (Version 4)
Quarter: 2021Q3

REPORT INFORMATION
  Report Type: Spontaneous
  Country: US (occurrence: US)
  Receive Date: 20210824
  Receipt Date: 20210909
  Transmission Date: 20211014
  Serious: No
  Sender: FDA-Public Use
  Company Number: US-AMGEN-USASP2021128123

PATIENT
  Age: 60 Year
  Sex: Male
  Weight: 57.6 kg

DRUGS (2)
  1. NEULASTA [Suspect]
     Active Substance: PEGFILGRASTIM
     Indication: OFF LABEL USE
  2. NEULASTA [Suspect]
     Active Substance: PEGFILGRASTIM
     Indication: THROMBOCYTOPENIA
     Dosage: UNK
     Route: 065

REACTIONS (3)
  - Device occlusion [Unknown]
  - Application site haemorrhage [Unknown]
  - Off label use [Unknown]

NARRATIVE: CASE EVENT DATE: 20210816
